FAERS Safety Report 14995053 (Version 1)
Quarter: 2018Q2

REPORT INFORMATION
  Report Type: Spontaneous
  Country: AU (occurrence: AU)
  Receive Date: 20180611
  Receipt Date: 20180611
  Transmission Date: 20180711
  Serious: Yes (Hospitalization)
  Sender: FDA-Public Use
  Company Number: AU-IPSEN BIOPHARMACEUTICALS, INC.-2018-07670

PATIENT
  Age: 60 Year
  Sex: Female

DRUGS (4)
  1. BOTULINUM TOXIN TYPE A NOS [Suspect]
     Active Substance: BOTULINUM TOXIN TYPE A
     Indication: SPASMODIC DYSPHONIA
     Dosage: NOT REPORTED
     Route: 030
  2. FISH OIL [Concomitant]
     Active Substance: FISH OIL
  3. OMEPRAZOLE. [Concomitant]
     Active Substance: OMEPRAZOLE
  4. BOTULINUM TOXIN TYPE A NOS [Suspect]
     Active Substance: BOTULINUM TOXIN TYPE A
     Indication: OFF LABEL USE

REACTIONS (9)
  - Dyspnoea [Unknown]
  - Neck pain [Unknown]
  - Swelling [Unknown]
  - Wound [Unknown]
  - Pain [Unknown]
  - Off label use [Unknown]
  - Stridor [Unknown]
  - Pharyngeal haematoma [Unknown]
  - Tenderness [Unknown]
